FAERS Safety Report 9541921 (Version 4)
Quarter: 2013Q4

REPORT INFORMATION
  Report Type: Spontaneous
  Country: ZA (occurrence: ZA)
  Receive Date: 20130923
  Receipt Date: 20131023
  Transmission Date: 20140711
  Serious: Yes (Hospitalization)
  Sender: FDA-Public Use
  Company Number: PHHY2013ZA105121

PATIENT
  Age: 52 Year
  Sex: Male

DRUGS (2)
  1. TASIGNA [Suspect]
     Indication: CHRONIC MYELOID LEUKAEMIA
     Route: 048
     Dates: start: 201303, end: 201307
  2. TASIGNA [Suspect]
     Dosage: UNK
     Route: 048

REACTIONS (5)
  - Immune system disorder [Unknown]
  - Blast crisis in myelogenous leukaemia [Unknown]
  - White blood cell count decreased [Recovering/Resolving]
  - Anaemia [Recovering/Resolving]
  - Hypersensitivity [Unknown]
